FAERS Safety Report 8068764-6 (Version None)
Quarter: 2012Q1

REPORT INFORMATION
  Report Type: 
  Country: None (occurrence: None)
  Receive Date: 20120124
  Receipt Date: 20111221
  Transmission Date: 20120608
  Serious: No
  Sender: FDA-Public Use
  Company Number: US-AMGEN-USASP2011048236

PATIENT
  Age: 85 Year
  Sex: Male

DRUGS (16)
  1. ASPIRIN [Concomitant]
  2. LISINOPRIL [Concomitant]
  3. XGEVA [Suspect]
     Dosage: 120 MG, Q4WK
     Dates: start: 20110110, end: 20110822
  4. WARFARIN SODIUM [Concomitant]
  5. PLAVIX [Concomitant]
  6. CALCIUM [Concomitant]
  7. FISH OIL [Concomitant]
  8. XGEVA [Suspect]
     Indication: METASTASES TO BONE
     Dosage: 120 MG, Q4WK
     Dates: start: 20110110, end: 20110822
  9. XGEVA [Suspect]
     Dosage: 120 MG, Q4WK
     Dates: start: 20110110, end: 20110822
  10. HYDROCHLOROTHIAZIDE [Concomitant]
  11. ADVAIR DISKUS 100/50 [Concomitant]
  12. ELIGARD [Concomitant]
  13. XALATAN [Concomitant]
  14. XGEVA [Suspect]
     Dosage: 120 MG, Q4WK
     Dates: start: 20110110, end: 20110822
  15. UROXATRAL [Concomitant]
  16. VITAMIN D [Concomitant]

REACTIONS (2)
  - MUSCULAR WEAKNESS [None]
  - MUSCLE SPASMS [None]
